FAERS Safety Report 8544817 (Version 4)
Quarter: 2013Q2

REPORT INFORMATION
  Report Type: Spontaneous
  Country: US (occurrence: US)
  Receive Date: 20120503
  Receipt Date: 20130528
  Transmission Date: 20140414
  Serious: No
  Sender: FDA-Public Use
  Company Number: US-PFIZER INC-2012104093

PATIENT
  Age: 85 Year
  Sex: Female

DRUGS (4)
  1. LIPITOR [Suspect]
     Dosage: UNK
  2. ACCURETIC [Suspect]
     Dosage: UNK
  3. ZOLOFT [Suspect]
     Dosage: UNK
  4. XALATAN [Suspect]
     Dosage: UNK

REACTIONS (2)
  - Mental disorder [Recovered/Resolved]
  - Hearing impaired [Not Recovered/Not Resolved]
